FAERS Safety Report 23219911 (Version 6)
Quarter: 2024Q4

REPORT INFORMATION
  Report Type: Spontaneous
  Country: BE (occurrence: BE)
  Receive Date: 20231122
  Receipt Date: 20241002
  Transmission Date: 20250115
  Serious: Yes (Death, Life-Threatening, Other)
  Sender: JOHNSON AND JOHNSON
  Company Number: BE-JNJFOC-20231154550

PATIENT
  Age: 79 Year
  Sex: Female
  Weight: 83.3 kg

DRUGS (32)
  1. TALVEY [Suspect]
     Active Substance: TALQUETAMAB-TGVS
     Indication: Plasma cell myeloma refractory
     Route: 065
     Dates: start: 20230928
  2. TALVEY [Suspect]
     Active Substance: TALQUETAMAB-TGVS
     Dosage: FIRST ADMINISTRATION OF CYCLE 2
     Route: 065
     Dates: start: 20231019
  3. TALVEY [Suspect]
     Active Substance: TALQUETAMAB-TGVS
     Route: 065
     Dates: start: 20231103, end: 20240304
  4. ATARAX [Concomitant]
     Active Substance: HYDROXYZINE HYDROCHLORIDE
     Dates: start: 20231105
  5. BILASTINE [Concomitant]
     Active Substance: BILASTINE
     Dates: start: 20231105
  6. BETAMETHASONE DIPROPIONATE [Concomitant]
     Active Substance: BETAMETHASONE DIPROPIONATE
     Dosage: 0.05%
     Dates: start: 20231102
  7. GLIQUIDONE [Concomitant]
     Active Substance: GLIQUIDONE
     Route: 048
  8. PANTOPRAZOLE [Concomitant]
     Active Substance: PANTOPRAZOLE
     Route: 048
  9. SIMVASTATIN [Concomitant]
     Active Substance: SIMVASTATIN
     Route: 048
  10. BETAHISTINE [Concomitant]
     Active Substance: BETAHISTINE
     Route: 048
  11. ASPIRIN [Concomitant]
     Active Substance: ASPIRIN
     Route: 048
  12. METFORMIN HYDROCHLORIDE [Concomitant]
     Active Substance: METFORMIN HYDROCHLORIDE
     Route: 048
  13. BISOPROLOL [Concomitant]
     Active Substance: BISOPROLOL\BISOPROLOL FUMARATE
     Route: 048
  14. FENOTEROL\IPRATROPIUM [Concomitant]
     Active Substance: FENOTEROL\IPRATROPIUM
     Dosage: 50/20UG/DO
  15. FUROSEMIDE [Concomitant]
     Active Substance: FUROSEMIDE
     Route: 048
  16. ACETAMINOPHEN [Concomitant]
     Active Substance: ACETAMINOPHEN
     Route: 048
  17. CINACALCET HYDROCHLORIDE [Concomitant]
     Active Substance: CINACALCET HYDROCHLORIDE
     Route: 048
  18. HYALURONATE SODIUM\TREHALOSE [Concomitant]
     Active Substance: HYALURONATE SODIUM\TREHALOSE
  19. OFLOXACIN [Concomitant]
     Active Substance: OFLOXACIN
  20. AMLODIPINE BESYLATE\HYDROCHLOROTHIAZIDE\OLMESARTAN MEDOXOMIL [Concomitant]
     Active Substance: AMLODIPINE BESYLATE\HYDROCHLOROTHIAZIDE\OLMESARTAN MEDOXOMIL
     Dosage: 40/10/25MG
     Route: 048
  21. METHYLPREDNISOLONE [Concomitant]
     Active Substance: METHYLPREDNISOLONE
     Route: 048
     Dates: start: 20231127
  22. METHYLPREDNISOLONE [Concomitant]
     Active Substance: METHYLPREDNISOLONE
     Route: 048
     Dates: start: 20231212
  23. ACETYLCYSTEINE [Concomitant]
     Active Substance: ACETYLCYSTEINE
     Dates: end: 20231203
  24. AUGMENTIN [Concomitant]
     Active Substance: AMOXICILLIN\CLAVULANATE POTASSIUM
     Dosage: 875/125MG
     Route: 048
     Dates: end: 20231204
  25. FUSIDIC ACID [Concomitant]
     Active Substance: FUSIDIC ACID
  26. MAGNESIUM GLUCONATE [Concomitant]
     Active Substance: MAGNESIUM GLUCONATE
     Route: 048
  27. ACYCLOVIR [Concomitant]
     Active Substance: ACYCLOVIR
     Route: 048
  28. ACETAMINOPHEN [Concomitant]
     Active Substance: ACETAMINOPHEN
     Route: 048
  29. PERIO AID ACTIVE CONTROL [Concomitant]
  30. METOCLOPRAMIDE [Concomitant]
     Active Substance: METOCLOPRAMIDE
  31. LIPIKAR [VITELLARIA PARADOXA SUBSP. PARADOXA] [Concomitant]
  32. OFLOXACIN [Concomitant]
     Active Substance: OFLOXACIN

REACTIONS (12)
  - Death [Fatal]
  - Cytokine release syndrome [Recovered/Resolved]
  - Drug reaction with eosinophilia and systemic symptoms [Recovered/Resolved]
  - Acute hepatic failure [Recovered/Resolved]
  - Brain injury [Unknown]
  - Cerebral venous sinus thrombosis [Unknown]
  - Oral herpes [Unknown]
  - Pneumonia viral [Unknown]
  - Plasma cell myeloma [Unknown]
  - Polyneuropathy [Unknown]
  - Urosepsis [Unknown]
  - Thrombocytopenia [Unknown]

NARRATIVE: CASE EVENT DATE: 20231025
